FAERS Safety Report 5745274-X (Version None)
Quarter: 2008Q2

REPORT INFORMATION
  Report Type: 
  Country: None (occurrence: None)
  Receive Date: 20080521
  Receipt Date: 20080513
  Transmission Date: 20081010
  Serious: Yes (Death, Hospitalization)
  Sender: FDA-Public Use
  Company Number: NL-BAYER-200612068GDS

PATIENT
  Age: 61 Year
  Sex: Female
  Weight: 70 kg

DRUGS (8)
  1. SORAFENIB [Suspect]
     Indication: RENAL CELL CARCINOMA
     Dosage: TOTAL DAILY DOSE: 800 MG
     Route: 048
     Dates: start: 20060323, end: 20060418
  2. SORAFENIB [Suspect]
     Dosage: TOTAL DAILY DOSE: 800 MG
     Route: 048
     Dates: start: 20060423, end: 20060516
  3. ATACAND [Concomitant]
     Indication: HYPERTENSION
     Route: 048
     Dates: end: 20060504
  4. HYDROCHLOROTHIAZIDE [Concomitant]
     Indication: HYPERTENSION
     Route: 048
     Dates: end: 20060504
  5. PRAVASTATIN [Concomitant]
     Indication: DRUG USE FOR UNKNOWN INDICATION
     Route: 048
     Dates: end: 20060504
  6. MORPHINE [Concomitant]
     Indication: PAIN
     Route: 030
     Dates: start: 20060518, end: 20060518
  7. MIDAZOLAM HCL [Concomitant]
     Indication: ANXIETY
     Route: 042
     Dates: start: 20060518, end: 20060518
  8. OXYCODON [Concomitant]
     Indication: PAIN
     Route: 065
     Dates: start: 20060504, end: 20060516

REACTIONS (3)
  - LARGE INTESTINE PERFORATION [None]
  - RENAL IMPAIRMENT [None]
  - SEPSIS [None]
